FAERS Safety Report 17728918 (Version 4)
Quarter: 2020Q2

REPORT INFORMATION
  Report Type: Report from Study
  Country: FR (occurrence: FR)
  Receive Date: 20200430
  Receipt Date: 20200623
  Transmission Date: 20200714
  Serious: Yes (Death, Hospitalization)
  Sender: FDA-Public Use
  Company Number: FR-ROCHE-2591165

PATIENT
  Age: 72 Year
  Sex: Female

DRUGS (11)
  1. ATRACURIUM [Concomitant]
     Active Substance: ATRACURIUM
  2. NORADRENALINE [NOREPINEPHRINE] [Concomitant]
     Active Substance: NOREPINEPHRINE
  3. PROPOFOL. [Concomitant]
     Active Substance: PROPOFOL
  4. TOCILIZUMAB. [Suspect]
     Active Substance: TOCILIZUMAB
     Indication: COVID-19
     Dosage: 20 MG/ML
     Route: 042
     Dates: start: 20200402, end: 20200402
  5. SUFENTA [Concomitant]
     Active Substance: SUFENTANIL CITRATE
  6. INSULIN [Concomitant]
     Active Substance: INSULIN NOS
  7. LOVENOX [Concomitant]
     Active Substance: ENOXAPARIN SODIUM
  8. TOCILIZUMAB. [Suspect]
     Active Substance: TOCILIZUMAB
     Dosage: 20 MG/ML
     Route: 042
     Dates: start: 20200404, end: 20200404
  9. FUROSEMIDE. [Concomitant]
     Active Substance: FUROSEMIDE
  10. CALCIPARINE [Concomitant]
     Active Substance: HEPARIN CALCIUM
  11. LANSOPRAZOLE. [Concomitant]
     Active Substance: LANSOPRAZOLE

REACTIONS (3)
  - Pneumonia bacterial [Fatal]
  - Hypoxia [Fatal]
  - Enterococcal infection [Fatal]

NARRATIVE: CASE EVENT DATE: 20200414
